FAERS Safety Report 4824241-4 (Version None)
Quarter: 2005Q4

REPORT INFORMATION
  Report Type: 
  Country: None (occurrence: None)
  Receive Date: 20051108
  Receipt Date: 20051101
  Transmission Date: 20060501
  Serious: Yes (Disabling, Other)
  Sender: FDA-Public Use
  Company Number: 2005141847

PATIENT
  Sex: Female

DRUGS (1)
  1. LIPITOR [Suspect]
     Indication: ILL-DEFINED DISORDER
     Dosage: 20 MG (20 MG, 1 IN 1 D), ORAL
     Route: 048

REACTIONS (5)
  - DRUG INEFFECTIVE [None]
  - HERPES ZOSTER [None]
  - INTERVERTEBRAL DISC DISORDER [None]
  - NEUROPATHY PERIPHERAL [None]
  - TRANSIENT ISCHAEMIC ATTACK [None]
